FAERS Safety Report 15522947 (Version 2)
Quarter: 2019Q2

REPORT INFORMATION
  Report Type: Spontaneous
  Country: US (occurrence: US)
  Receive Date: 20181017
  Receipt Date: 20190621
  Transmission Date: 20190711
  Serious: Yes (Hospitalization, Other)
  Sender: FDA-Public Use
  Company Number: US-DSJP-DSU-2017-140661

PATIENT

DRUGS (1)
  1. BENICAR HCT [Suspect]
     Active Substance: HYDROCHLOROTHIAZIDE\OLMESARTAN MEDOXOMIL
     Indication: PRODUCT USED FOR UNKNOWN INDICATION
     Dosage: 20-12.5 MG, QD
     Dates: end: 20171201

REACTIONS (9)
  - Gastritis erosive [Recovering/Resolving]
  - Hiatus hernia [Unknown]
  - Acute kidney injury [Unknown]
  - Haemorrhoids [Unknown]
  - Dizziness [Recovering/Resolving]
  - Sprue-like enteropathy [Recovering/Resolving]
  - Colitis ulcerative [Recovering/Resolving]
  - Small intestinal obstruction [Unknown]
  - Diverticulum intestinal [Unknown]

NARRATIVE: CASE EVENT DATE: 200704
